FAERS Safety Report 24968487 (Version 1)
Quarter: 2025Q1

REPORT INFORMATION
  Report Type: Spontaneous
  Country: US (occurrence: US)
  Receive Date: 20250214
  Receipt Date: 20250214
  Transmission Date: 20250408
  Serious: Yes (Other)
  Sender: AUROBINDO
  Company Number: US-MLMSERVICE-20250123-PI371353-00111-1

PATIENT
  Age: 30 Year
  Sex: Female

DRUGS (4)
  1. CEFIXIME [Suspect]
     Active Substance: CEFIXIME
     Indication: Sinusitis
     Dosage: 300 MILLIGRAM, ONCE A DAY
     Route: 048
  2. CEFIXIME [Suspect]
     Active Substance: CEFIXIME
     Indication: Bacterial infection
  3. SULFAMETHOXAZOLE\TRIMETHOPRIM [Suspect]
     Active Substance: SULFAMETHOXAZOLE\TRIMETHOPRIM
     Indication: Gastroenteritis salmonella
     Dosage: 1 DOSAGE FORM, TWO TIMES A DAY (SEVEN DAYS)
     Route: 048
  4. SULFAMETHOXAZOLE\TRIMETHOPRIM [Suspect]
     Active Substance: SULFAMETHOXAZOLE\TRIMETHOPRIM
     Indication: Bacterial food poisoning

REACTIONS (3)
  - Gastroenteritis salmonella [Recovered/Resolved]
  - Condition aggravated [Recovered/Resolved]
  - Dysbiosis [Recovered/Resolved]
